FAERS Safety Report 24082831 (Version 1)
Quarter: 2024Q3

REPORT INFORMATION
  Report Type: Spontaneous
  Country: US (occurrence: US)
  Receive Date: 20240712
  Receipt Date: 20240712
  Transmission Date: 20241016
  Serious: Yes (Other)
  Sender: JOHNSON AND JOHNSON
  Company Number: US-JNJFOC-20240720403

PATIENT

DRUGS (2)
  1. TALVEY [Suspect]
     Active Substance: TALQUETAMAB-TGVS
     Indication: Product used for unknown indication
     Route: 065
     Dates: start: 20230710
  2. TALVEY [Suspect]
     Active Substance: TALQUETAMAB-TGVS
     Route: 065
     Dates: start: 20231110

REACTIONS (1)
  - Cytokine release syndrome [Unknown]

NARRATIVE: CASE EVENT DATE: 20231007
